FAERS Safety Report 4452930-2 (Version None)
Quarter: 2004Q3

REPORT INFORMATION
  Report Type: 
  Country: None (occurrence: None)
  Receive Date: 20040916
  Receipt Date: 20040901
  Transmission Date: 20050211
  Serious: Yes (Hospitalization)
  Sender: FDA-Public Use
  Company Number: 2004-BP-07552RO

PATIENT
  Age: 66 Year
  Sex: Female

DRUGS (14)
  1. DEXAMETHASONE [Suspect]
     Indication: MULTIPLE MYELOMA
     Dosage: CYCLIC: 40 MG/D X 4 D/CYCLE, PO
     Route: 048
     Dates: start: 20030221, end: 20030303
  2. GENASENSE [Suspect]
     Indication: MULTIPLE MYELOMA
     Dosage: CYCLIC: 7 MG/KG/D X 7 D/CYCLE, IV
     Route: 042
     Dates: start: 20030218, end: 20030224
  3. IRON SUPPLEMENT (IRON PREPARATIONS) [Concomitant]
  4. TIMOLOL MALEATE [Concomitant]
  5. ACETAMINOPHEN [Concomitant]
  6. FUROSEMIDE [Concomitant]
  7. POTASSIUM SUPPLEMENT (POTASSIUM) [Concomitant]
  8. VITAMIN C (ASCORBIC ACID) [Concomitant]
  9. PROCHLORPERAZINE [Concomitant]
  10. TEMAZEPAM [Concomitant]
  11. LEVOTHYROXINE SODIUM [Concomitant]
  12. PAMIDRONATE DISODIUM [Concomitant]
  13. TRIMETHROPRIM/SULFAMETHAXOZOLE (BACTRIM) [Concomitant]
  14. RANITIDINE [Concomitant]

REACTIONS (8)
  - COAGULOPATHY [None]
  - GASTROINTESTINAL HAEMORRHAGE [None]
  - HEPATIC FAILURE [None]
  - MALIGNANT NEOPLASM PROGRESSION [None]
  - MULTIPLE MYELOMA [None]
  - OPERATIVE HAEMORRHAGE [None]
  - PLASMACYTOMA [None]
  - TUMOUR HAEMORRHAGE [None]
